FAERS Safety Report 12864301 (Version 1)
Quarter: 2016Q4

REPORT INFORMATION
  Report Type: Spontaneous
  Country: US (occurrence: US)
  Receive Date: 20161020
  Receipt Date: 20161020
  Transmission Date: 20170207
  Serious: No
  Sender: FDA-Public Use
  Company Number: US-TEVA-641853USA

PATIENT
  Sex: Female
  Weight: 52.21 kg

DRUGS (1)
  1. METHOTREXATE. [Suspect]
     Active Substance: METHOTREXATE
     Indication: RHEUMATOID ARTHRITIS
     Dosage: 0.4 1 TIMES PER WEEK
     Route: 065
     Dates: start: 20160206

REACTIONS (4)
  - Incorrect product storage [Unknown]
  - Wrong technique in product usage process [Unknown]
  - Fatigue [Unknown]
  - Constipation [Unknown]
